FAERS Safety Report 15924547 (Version 1)
Quarter: 2019Q1

REPORT INFORMATION
  Report Type: Report from Study
  Country: IL (occurrence: IL)
  Receive Date: 20190206
  Receipt Date: 20190206
  Transmission Date: 20190417
  Serious: Yes (Other)
  Sender: FDA-Public Use
  Company Number: IL-IPSEN BIOPHARMACEUTICALS, INC.-2018-11575

PATIENT
  Sex: Female

DRUGS (1)
  1. SOMATULINE AUTOGEL 120MG [Suspect]
     Active Substance: LANREOTIDE ACETATE
     Indication: NEUROENDOCRINE TUMOUR
     Dosage: 120 MG
     Route: 065
     Dates: start: 20170322

REACTIONS (5)
  - Lymphadenopathy [Unknown]
  - Alopecia [Unknown]
  - Infectious mononucleosis [Recovered/Resolved]
  - Lymphoma [Unknown]
  - Uterine enlargement [Recovering/Resolving]

NARRATIVE: CASE EVENT DATE: 2018
